FAERS Safety Report 12986171 (Version 1)
Quarter: 2016Q4

REPORT INFORMATION
  Report Type: Spontaneous
  Country: US (occurrence: US)
  Receive Date: 20161130
  Receipt Date: 20161130
  Transmission Date: 20170207
  Serious: No
  Sender: FDA-Public Use
  Company Number: US-ELI_LILLY_AND_COMPANY-US201611002225

PATIENT
  Sex: Male
  Weight: 27.21 kg

DRUGS (3)
  1. STRATTERA [Suspect]
     Active Substance: ATOMOXETINE HYDROCHLORIDE
     Indication: OPPOSITIONAL DEFIANT DISORDER
  2. STRATTERA [Suspect]
     Active Substance: ATOMOXETINE HYDROCHLORIDE
     Indication: ATTENTION DEFICIT/HYPERACTIVITY DISORDER
     Dosage: 10 MG, QD
     Route: 065
     Dates: start: 201610
  3. XENAZINE [Concomitant]
     Active Substance: TETRABENAZINE
     Indication: TIC
     Dosage: UNK, UNKNOWN
     Route: 065
     Dates: start: 201510

REACTIONS (8)
  - Fear [Unknown]
  - Vomiting [Unknown]
  - Emotional distress [Unknown]
  - Anxiety [Unknown]
  - Mental fatigue [Unknown]
  - Crying [Unknown]
  - Abdominal pain upper [Unknown]
  - Fatigue [Unknown]
